FAERS Safety Report 6398827-2 (Version None)
Quarter: 2009Q4

REPORT INFORMATION
  Report Type: 
  Country: None (occurrence: None)
  Receive Date: 20091013
  Receipt Date: 20091005
  Transmission Date: 20100525
  Serious: No
  Sender: FDA-Public Use
  Company Number: US-ROXANE LABORATORIES, INC.-2009-RO-01061RO

PATIENT
  Sex: Male

DRUGS (1)
  1. AZATHIOPRINE [Suspect]

REACTIONS (2)
  - PHARYNGEAL OEDEMA [None]
  - RASH [None]
